FAERS Safety Report 5680548-2 (Version None)
Quarter: 2008Q1

REPORT INFORMATION
  Report Type: 
  Country: None (occurrence: None)
  Receive Date: 20080326
  Receipt Date: 20080321
  Transmission Date: 20080703
  Serious: Yes (Disabling, Other)
  Sender: FDA-Public Use
  Company Number: US-MERCK-0710USA06031

PATIENT
  Age: 83 Year
  Sex: Female

DRUGS (2)
  1. FOSAMAX [Suspect]
     Indication: OSTEOPOROSIS
     Route: 048
     Dates: start: 20020301, end: 20051201
  2. FOSAMAX PLUS D [Suspect]
     Indication: OSTEOPOROSIS
     Route: 065

REACTIONS (27)
  - ABSCESS [None]
  - ANXIETY [None]
  - CATARACT [None]
  - CATARACT OPERATION [None]
  - DENTAL CARIES [None]
  - ECCHYMOSIS [None]
  - EDENTULOUS [None]
  - EXOSTOSIS [None]
  - EYE DISORDER [None]
  - FACE INJURY [None]
  - FALL [None]
  - FEAR [None]
  - FISTULA [None]
  - GENERALISED OEDEMA [None]
  - GINGIVAL BLEEDING [None]
  - IMPAIRED HEALING [None]
  - INTERMITTENT CLAUDICATION [None]
  - JAW FRACTURE [None]
  - ORAL DISORDER [None]
  - ORAL INFECTION [None]
  - OSTEOMYELITIS [None]
  - OSTEONECROSIS [None]
  - PAIN [None]
  - PERIODONTAL DISEASE [None]
  - PERIPHERAL VASCULAR DISORDER [None]
  - SUBCLAVIAN ARTERY STENOSIS [None]
  - TOOTH EXTRACTION [None]
